FAERS Safety Report 9107351 (Version 1)
Quarter: 2013Q1

REPORT INFORMATION
  Report Type: Spontaneous
  Country: FR (occurrence: FR)
  Receive Date: 20130221
  Receipt Date: 20130221
  Transmission Date: 20140127
  Serious: Yes (Hospitalization)
  Sender: FDA-Public Use
  Company Number: FR-JNJFOC-20130209260

PATIENT
  Age: 22 Year
  Sex: Female

DRUGS (3)
  1. IXPRIM [Suspect]
     Indication: TORTICOLLIS
     Route: 048
     Dates: start: 20130124, end: 20130124
  2. SYMBICORT [Concomitant]
     Indication: ASTHMA
     Route: 055
  3. AERIUS [Concomitant]
     Indication: ASTHMA
     Route: 048

REACTIONS (5)
  - Vomiting [Recovered/Resolved]
  - Convulsion [Recovered/Resolved]
  - Nausea [Recovered/Resolved]
  - Malaise [Recovered/Resolved]
  - Loss of consciousness [Recovered/Resolved]
